FAERS Safety Report 9577466 (Version 1)
Quarter: 2013Q4

REPORT INFORMATION
  Report Type: Spontaneous
  Country: US (occurrence: US)
  Receive Date: 20131001
  Receipt Date: 20131001
  Transmission Date: 20140711
  Serious: No
  Sender: FDA-Public Use
  Company Number: US-AMGEN-USASP2013008236

PATIENT
  Sex: Female

DRUGS (11)
  1. ENBREL [Suspect]
     Indication: RHEUMATOID ARTHRITIS
     Dosage: 25 MG, 2 TIMES/WK
     Route: 058
  2. SIMVASTATIN [Concomitant]
     Dosage: 5 MG, UNK
  3. FOLIC ACID [Concomitant]
     Dosage: 1 MG, UNK
  4. LEVOTHYROXIN [Concomitant]
     Dosage: 100 MUG, UNK
  5. ASPIRIN [Concomitant]
     Dosage: 81 MG, UNK
  6. VITAMIN B12                        /00056201/ [Concomitant]
     Dosage: 1000 CR
  7. FISH OIL [Concomitant]
     Dosage: UNK
  8. MULTIVITAMIN                       /07504101/ [Concomitant]
     Dosage: UNK
  9. ETODOLAC [Concomitant]
     Dosage: 200 MG, UNK
  10. METHOTREXATE [Concomitant]
     Dosage: 1 G, UNK
  11. CALCIUM +D                         /00944201/ [Concomitant]
     Dosage: UNK

REACTIONS (2)
  - Lymphadenopathy [Recovered/Resolved]
  - Nasopharyngitis [Recovered/Resolved]
